FAERS Safety Report 9205858 (Version 1)
Quarter: 2013Q1

REPORT INFORMATION
  Report Type: Spontaneous
  Country: US (occurrence: None)
  Receive Date: 20120709
  Receipt Date: 20120709
  Transmission Date: 20140127
  Serious: Yes (Hospitalization, Other)
  Sender: FDA-Public Use
  Company Number: PHEH2011US04441

PATIENT
  Age: 47 Year
  Sex: Female

DRUGS (11)
  1. GLEEVEC (IMATINIB) UNKNOWN [Suspect]
     Route: 048
     Dates: start: 200610, end: 2007
  2. LASIX (FUROSEMIDE) [Suspect]
  3. POTASSIUM (POTASSIUM) [Concomitant]
  4. OXYCODONE (OXYCODONE) [Concomitant]
  5. FENTANYL (FENTANYL) [Concomitant]
  6. EFFEXOR (VENLAFAXINE HYDROCHLORIDE) UNKNOWN [Concomitant]
  7. ATIVAN (LORAZEPAM) [Concomitant]
  8. SENOKOT /UNK(SENNA ALEXDRINA FRUIT) [Concomitant]
  9. OXYIR  (OXYCODONE HYDROCHLORIDE) [Concomitant]
  10. FLEXERIL (CYCLOBENZAPRINE HYDROCHLORIDE) [Concomitant]
  11. DIURETICS (NO INGREDIENTS/SUSTANCES) [Concomitant]

REACTIONS (9)
  - Fluid retention [None]
  - Blood potassium decreased [None]
  - Pulmonary embolism [None]
  - Thrombosis [None]
  - Pain in extremity [None]
  - Weight increased [None]
  - Bone pain [None]
  - Arthralgia [None]
  - Myalgia [None]
